FAERS Safety Report 5734774-4 (Version None)
Quarter: 2008Q2

REPORT INFORMATION
  Report Type: 
  Country: None (occurrence: None)
  Receive Date: 20080512
  Receipt Date: 20080506
  Transmission Date: 20081010
  Serious: Yes (Hospitalization)
  Sender: FDA-Public Use
  Company Number: PHRM2008FR01394

PATIENT
  Age: 62 Year
  Sex: Male
  Weight: 69 kg

DRUGS (4)
  1. TEGRETOL [Suspect]
     Indication: TRIGEMINAL NEURALGIA
     Dosage: 200 MG, QD
     Route: 048
     Dates: start: 19950901, end: 20080422
  2. NALBUPHINE [Suspect]
     Indication: PAIN
     Dosage: 20 MG, 5QD
     Route: 058
     Dates: start: 20080419, end: 20080421
  3. RIVOTRIL [Concomitant]
     Dates: start: 19950101
  4. TEGRETOL [Suspect]
     Indication: TRIGEMINAL NEURALGIA
     Dosage: 1 G DAILY
     Route: 048
     Dates: start: 19950901, end: 20080422

REACTIONS (3)
  - CONFUSIONAL STATE [None]
  - COORDINATION ABNORMAL [None]
  - DRUG INTERACTION [None]
